FAERS Safety Report 16222683 (Version 4)
Quarter: 2019Q4

REPORT INFORMATION
  Report Type: Spontaneous
  Country: US (occurrence: US)
  Receive Date: 20190422
  Receipt Date: 20191104
  Transmission Date: 20200122
  Serious: No
  Sender: FDA-Public Use
  Company Number: US-PFIZER INC-2019164548

PATIENT
  Age: 42 Year
  Sex: Male
  Weight: 116.1 kg

DRUGS (3)
  1. DILANTIN [Suspect]
     Active Substance: PHENYTOIN
     Indication: SEIZURE
     Dosage: 300 MG, DAILY
     Route: 048
  2. DILANTIN [Suspect]
     Active Substance: PHENYTOIN
     Dosage: 500 MG, DAILY
     Route: 048
  3. DILANTIN [Suspect]
     Active Substance: PHENYTOIN
     Dosage: 300 MG, 2X/DAY (3 CAPULES IN THE MORNING AND 3 CAPSULES IN THE EVENING)
     Route: 048
     Dates: start: 2012

REACTIONS (2)
  - Drug ineffective [Unknown]
  - Anticonvulsant drug level decreased [Unknown]
